FAERS Safety Report 12273440 (Version 1)
Quarter: 2016Q2

REPORT INFORMATION
  Report Type: Spontaneous
  Country: GB (occurrence: GB)
  Receive Date: 20160415
  Receipt Date: 20160415
  Transmission Date: 20160815
  Serious: Yes (Other)
  Sender: FDA-Public Use
  Company Number: GB-BRISTOL-MYERS SQUIBB COMPANY-BMS-2016-024999

PATIENT
  Age: 73 Year
  Sex: Female
  Weight: 73.9 kg

DRUGS (1)
  1. YERVOY [Suspect]
     Active Substance: IPILIMUMAB
     Indication: METASTATIC MALIGNANT MELANOMA
     Dosage: 3 MG, UNK
     Route: 042
     Dates: start: 20140710, end: 20140910

REACTIONS (5)
  - Malaise [Unknown]
  - Fatigue [Unknown]
  - Feeling cold [Unknown]
  - Endocrine disorder [Not Recovered/Not Resolved]
  - Decreased appetite [Unknown]

NARRATIVE: CASE EVENT DATE: 20141008
